FAERS Safety Report 6976689-X (Version None)
Quarter: 2010Q3

REPORT INFORMATION
  Report Type: 
  Country: None (occurrence: None)
  Receive Date: 20100910
  Receipt Date: 20090506
  Transmission Date: 20110219
  Serious: No
  Sender: FDA-Public Use
  Company Number: US-WYE-H09239909

PATIENT
  Sex: Female

DRUGS (6)
  1. PRISTIQ [Suspect]
     Indication: DEPRESSION
     Route: 048
     Dates: start: 20090201, end: 20090401
  2. PRISTIQ [Suspect]
     Route: 048
     Dates: start: 20090401, end: 20090401
  3. PRISTIQ [Suspect]
     Dosage: ^TRYING TO TAPER BACK DOWN TO 50 MG DAILY^
     Route: 048
     Dates: start: 20090401
  4. ABILIFY [Concomitant]
  5. PROZAC [Concomitant]
  6. WELLBUTRIN [Concomitant]

REACTIONS (1)
  - LETHARGY [None]
